FAERS Safety Report 25432753 (Version 1)
Quarter: 2025Q2

REPORT INFORMATION
  Report Type: Spontaneous
  Country: US (occurrence: US)
  Receive Date: 20250613
  Receipt Date: 20250613
  Transmission Date: 20250716
  Serious: No
  Sender: ALVOGEN
  Company Number: US-ALVOGEN-2025096429

PATIENT
  Sex: Female
  Weight: 54.4 kg

DRUGS (2)
  1. LISDEXAMFETAMINE [Suspect]
     Active Substance: LISDEXAMFETAMINE
     Indication: Attention deficit hyperactivity disorder
     Dosage: IMPRINT CODE: ALV;565 MENTIONED ON THE CAPSULE?1 TIME IN THE MORNING
     Route: 048
     Dates: start: 202406, end: 20250227
  2. BUPROPION [Concomitant]
     Active Substance: BUPROPION
     Indication: Product used for unknown indication

REACTIONS (1)
  - Hypoaesthesia [Not Recovered/Not Resolved]
